FAERS Safety Report 25831851 (Version 1)
Quarter: 2025Q3

REPORT INFORMATION
  Report Type: Spontaneous
  Country: US (occurrence: None)
  Receive Date: 20250918
  Receipt Date: 20250918
  Transmission Date: 20251020
  Serious: Yes (Hospitalization)
  Sender: FDA-CTU
  Company Number: None

PATIENT
  Age: 56 Year
  Sex: Female
  Weight: 56.5 kg

DRUGS (11)
  1. NERATINIB [Suspect]
     Active Substance: NERATINIB
     Indication: Breast cancer
     Dosage: FREQUENCY : DAILY;?
     Dates: start: 20250530, end: 20250904
  2. Nonformulary: Allergy shots (allergic rhinitis) [Concomitant]
  3. Famotidlne (Hematemesis) [Concomitant]
  4. Amoxicillin (11elicabacter pylori, infection) [Concomitant]
  5. Vonoprazan (helicobacter pylori, infection) [Concomitant]
  6. Bismuth subsalicylate (helicobactsr pylori, infection) [Concomitant]
  7. Tetracycline (helicobacter pylori, infection) [Concomitant]
  8. Metronidazole (helicobaoter pylori, infection) [Concomitant]
  9. Prochlorperazine + ondansetron (nausea) [Concomitant]
  10. Loperamide (diarrhea) [Concomitant]
  11. Citalopram (anxiety/depress) [Concomitant]

REACTIONS (7)
  - Diarrhoea [None]
  - Hypokalaemia [None]
  - Hyponatraemia [None]
  - Helicobacter infection [None]
  - Tachycardia [None]
  - Nausea [None]
  - Vomiting [None]

NARRATIVE: CASE EVENT DATE: 20250825
